FAERS Safety Report 21171225 (Version 1)
Quarter: 2022Q3

REPORT INFORMATION
  Report Type: Spontaneous
  Country: CN (occurrence: CN)
  Receive Date: 20220804
  Receipt Date: 20220804
  Transmission Date: 20221026
  Serious: Yes (Other)
  Sender: FDA-Public Use
  Company Number: CN-009507513-2207CHN009434

PATIENT
  Age: 30 Year
  Sex: Female

DRUGS (3)
  1. PEMBROLIZUMAB [Suspect]
     Active Substance: PEMBROLIZUMAB
     Indication: Oesophageal squamous cell carcinoma metastatic
     Dosage: UNK, CYCLICAL
  2. TAXOL [Suspect]
     Active Substance: PACLITAXEL
     Indication: Oesophageal squamous cell carcinoma metastatic
     Dosage: UNK, CYCLICAL
  3. NEDAPLATIN [Concomitant]
     Active Substance: NEDAPLATIN
     Indication: Oesophageal squamous cell carcinoma metastatic
     Dosage: UNK, CYCLICAL

REACTIONS (3)
  - Immune-mediated arthritis [Recovering/Resolving]
  - Polyarthritis [Recovering/Resolving]
  - Product use issue [Unknown]
